FAERS Safety Report 16667297 (Version 4)
Quarter: 2020Q1

REPORT INFORMATION
  Report Type: Spontaneous
  Country: PK (occurrence: PK)
  Receive Date: 20190805
  Receipt Date: 20200303
  Transmission Date: 20200409
  Serious: Yes (Death, Hospitalization, Disabling, Other)
  Sender: FDA-Public Use
  Company Number: PK-JNJFOC-20190737138

PATIENT
  Age: 30 Year
  Sex: Female
  Weight: 29.2 kg

DRUGS (9)
  1. ESCITALOPRAM [Interacting]
     Active Substance: ESCITALOPRAM OXALATE
     Indication: ANTIDEPRESSANT THERAPY
     Route: 065
  2. TMC207 [Suspect]
     Active Substance: BEDAQUILINE
     Indication: TUBERCULOSIS
     Route: 048
     Dates: start: 20180517, end: 201805
  3. CLOFAZIMINE [Suspect]
     Active Substance: CLOFAZIMINE
     Indication: TUBERCULOSIS
     Route: 065
     Dates: start: 20190208
  4. LINEZOLID. [Interacting]
     Active Substance: LINEZOLID
     Route: 048
     Dates: end: 20190209
  5. TMC207 [Suspect]
     Active Substance: BEDAQUILINE
     Route: 048
  6. CYCLOSERINE. [Suspect]
     Active Substance: CYCLOSERINE
     Indication: TUBERCULOSIS
     Route: 048
     Dates: end: 20190208
  7. PYRAZINAMIDE. [Suspect]
     Active Substance: PYRAZINAMIDE
     Indication: TUBERCULOSIS
     Route: 048
     Dates: start: 20180517
  8. ETHIONAMIDE [Suspect]
     Active Substance: ETHIONAMIDE
     Indication: TUBERCULOSIS
     Route: 048
     Dates: start: 20180517
  9. LINEZOLID. [Interacting]
     Active Substance: LINEZOLID
     Indication: TUBERCULOSIS
     Route: 048
     Dates: end: 201903

REACTIONS (9)
  - Treatment noncompliance [Unknown]
  - Anaemia [Unknown]
  - Deep vein thrombosis [Unknown]
  - Hypokalaemia [Fatal]
  - Hyponatraemia [Unknown]
  - Pulmonary embolism [Fatal]
  - Pulmonary tuberculosis [Fatal]
  - Drug interaction [Unknown]
  - Delusion [Fatal]

NARRATIVE: CASE EVENT DATE: 201811
